FAERS Safety Report 24374172 (Version 1)
Quarter: 2024Q3

REPORT INFORMATION
  Report Type: Spontaneous
  Country: DK (occurrence: DK)
  Receive Date: 20240927
  Receipt Date: 20240927
  Transmission Date: 20241017
  Serious: Yes (Hospitalization)
  Sender: FRESENIUS KABI
  Company Number: DK-FreseniusKabi-FK202414174

PATIENT
  Age: 58 Year
  Sex: Female

DRUGS (6)
  1. CARBOPLATIN [Suspect]
     Active Substance: CARBOPLATIN
     Indication: Product used for unknown indication
     Dosage: FORM OF ADMINISTRATION-CONCENTRATE FOR INFUSION
     Dates: start: 20240917
  2. CARBOPLATIN [Suspect]
     Active Substance: CARBOPLATIN
     Dosage: FORM OF ADMINISTRATION--CONCENTRATE FOR INFUSION
     Dates: start: 20240917
  3. Glucose 50 mg/ml solution for infusion 500 ml Fresenius Kabi infusion [Concomitant]
     Indication: Vehicle solution use
     Dosage: FOA-SOLUTION FOR INFUSION
  4. Alkynzeo [Concomitant]
     Indication: Product used for unknown indication
  5. VINORELBINE [Concomitant]
     Active Substance: VINORELBINE TARTRATE
     Indication: Product used for unknown indication
     Dosage: FOA- CAPSULES
  6. METOCLOPRAMIDE [Concomitant]
     Active Substance: METOCLOPRAMIDE
     Indication: Product used for unknown indication

REACTIONS (1)
  - Swollen tongue [Recovered/Resolved]

NARRATIVE: CASE EVENT DATE: 20240918
